FAERS Safety Report 8237350-7 (Version None)
Quarter: 2012Q1

REPORT INFORMATION
  Report Type: 
  Country: None (occurrence: None)
  Receive Date: 20120327
  Receipt Date: 20120321
  Transmission Date: 20120608
  Serious: Yes (Life-Threatening, Hospitalization, Other)
  Sender: FDA-Public Use
  Company Number: US-CELGENEUS-163-21880-11121331

PATIENT
  Sex: Male

DRUGS (3)
  1. REVLIMID [Suspect]
     Indication: MULTIPLE MYELOMA
     Dosage: 25 MILLIGRAM
     Route: 048
     Dates: start: 20101001
  2. PROTON PUMP INHIBITORS [Concomitant]
     Route: 065
     Dates: start: 20120101
  3. ASPIRIN [Concomitant]
     Route: 065

REACTIONS (3)
  - PLATELET COUNT DECREASED [None]
  - ANAEMIA [None]
  - GASTROINTESTINAL HAEMORRHAGE [None]
